FAERS Safety Report 7715722-4 (Version None)
Quarter: 2011Q3

REPORT INFORMATION
  Report Type: 
  Country: None (occurrence: None)
  Receive Date: 20110829
  Receipt Date: 20110824
  Transmission Date: 20111222
  Serious: Yes (Other)
  Sender: FDA-Public Use
  Company Number: GB-PFIZER INC-2011196192

PATIENT
  Age: 17 Year
  Sex: Male

DRUGS (3)
  1. SERTRALINE HYDROCHLORIDE [Suspect]
     Dosage: UNK
     Dates: start: 20101201
  2. SERTRALINE HYDROCHLORIDE [Suspect]
     Dosage: 50 MG, UNK
  3. SERTRALINE HYDROCHLORIDE [Suspect]
     Dosage: 25 MG, UNK

REACTIONS (1)
  - SHOCK [None]
